FAERS Safety Report 8424321-0 (Version None)
Quarter: 2012Q2

REPORT INFORMATION
  Report Type: 
  Country: None (occurrence: None)
  Receive Date: 20120608
  Receipt Date: 20120127
  Transmission Date: 20120825
  Serious: No
  Sender: FDA-Public Use
  Company Number: US-ASTRAZENECA-2012SE01484

PATIENT
  Age: 68 Year
  Sex: Female
  Weight: 117.9 kg

DRUGS (1)
  1. PULMICORT FLEXHALER [Suspect]
     Indication: CHRONIC OBSTRUCTIVE PULMONARY DISEASE
     Dosage: 2 PUFFS, QD
     Route: 055
     Dates: start: 20120104

REACTIONS (2)
  - HEADACHE [None]
  - OFF LABEL USE [None]
